FAERS Safety Report 7727299-8 (Version None)
Quarter: 2011Q3

REPORT INFORMATION
  Report Type: 
  Country: None (occurrence: None)
  Receive Date: 20110902
  Receipt Date: 20110901
  Transmission Date: 20111222
  Serious: Yes (Hospitalization)
  Sender: FDA-Public Use
  Company Number: DE-PFIZER INC-2011197555

PATIENT
  Age: 70 Year
  Sex: Male
  Weight: 67 kg

DRUGS (2)
  1. RIFAMPICIN [Suspect]
     Indication: ALOPECIA SCARRING
     Dosage: 300 MG, 2X/DAY
     Route: 048
     Dates: start: 20110510
  2. CLINDAMYCIN HCL [Suspect]
     Indication: ALOPECIA SCARRING
     Dosage: 300 MG, 2X/DAY
     Route: 048
     Dates: start: 20110510

REACTIONS (1)
  - LEUKOCYTOCLASTIC VASCULITIS [None]
